FAERS Safety Report 7644484-4 (Version None)
Quarter: 2011Q3

REPORT INFORMATION
  Report Type: 
  Country: None (occurrence: None)
  Receive Date: 20110729
  Receipt Date: 20110720
  Transmission Date: 20111222
  Serious: Yes (Hospitalization)
  Sender: FDA-Public Use
  Company Number: FR-PURDUE-GBR-2011-0008562

PATIENT
  Sex: Female

DRUGS (6)
  1. LOVENOX [Concomitant]
     Dosage: 0.4 ML, UNK
  2. AMOXICILLIN AND CLAVULANATE POTASSIUM [Suspect]
     Indication: SKIN ULCER
     Dosage: UNK
     Route: 042
     Dates: start: 20110603, end: 20110616
  3. ACETAMINOPHEN [Concomitant]
     Route: 042
  4. KEPPRA [Concomitant]
     Dosage: 500 MG, BID
     Route: 048
  5. TRANSIPEG                          /00754501/ [Concomitant]
     Dosage: 5.9 G, BID
     Route: 048
  6. OXYCODONE HYDROCHLORIDE [Suspect]
     Indication: PRODUCT USED FOR UNKNOWN INDICATION
     Dosage: 5 MG, BID OR TID
     Route: 048
     Dates: start: 20110607, end: 20110617

REACTIONS (1)
  - RASH MACULO-PAPULAR [None]
